FAERS Safety Report 4284258-8 (Version None)
Quarter: 2004Q1

REPORT INFORMATION
  Report Type: 
  Country: None (occurrence: None)
  Receive Date: 20040203
  Receipt Date: 20040119
  Transmission Date: 20041129
  Serious: Yes (Hospitalization)
  Sender: FDA-Public Use
  Company Number: WAES 0401ISR00015M

PATIENT
  Age: 23 Year
  Sex: Female
  Weight: 91 kg

DRUGS (2)
  1. ALDOMET [Suspect]
     Indication: HYPERTENSION
     Route: 048
  2. ALDOMET [Suspect]
     Route: 048

REACTIONS (16)
  - COMPLICATIONS OF MATERNAL EXPOSURE TO THERAPEUTIC DRUGS [None]
  - COUGH [None]
  - FACE OEDEMA [None]
  - FATIGUE [None]
  - HEADACHE [None]
  - HYPERCHOLESTEROLAEMIA [None]
  - HYPERTENSION [None]
  - MATERNAL DRUGS AFFECTING FOETUS [None]
  - NEPHROTIC SYNDROME [None]
  - OEDEMA [None]
  - PRE-ECLAMPSIA [None]
  - PREGNANCY [None]
  - PREMATURE BABY [None]
  - PULMONARY EMBOLISM [None]
  - TACHYPNOEA [None]
  - UTERINE SPASM [None]
